FAERS Safety Report 6915137-2 (Version None)
Quarter: 2010Q3

REPORT INFORMATION
  Report Type: 
  Country: None (occurrence: None)
  Receive Date: 20100809
  Receipt Date: 20100728
  Transmission Date: 20110219
  Serious: Yes (Hospitalization)
  Sender: FDA-Public Use
  Company Number: US-WYE-H16580010

PATIENT
  Sex: Male
  Weight: 108.96 kg

DRUGS (4)
  1. PRISTIQ [Suspect]
     Indication: DEPRESSION
     Route: 048
     Dates: start: 20100601
  2. DIOVAN [Concomitant]
     Indication: HYPERTENSION
     Dosage: 325/25
  3. TOPROL-XL [Concomitant]
     Indication: HYPERTENSION
     Dosage: UNKNOWN
     Dates: end: 20100101
  4. METFORMIN HCL [Concomitant]
     Indication: WEIGHT DECREASED

REACTIONS (4)
  - ASCITES [None]
  - BLOOD PRESSURE DECREASED [None]
  - HAEMOGLOBIN DECREASED [None]
  - OEDEMA [None]
